FAERS Safety Report 25216160 (Version 8)
Quarter: 2025Q3

REPORT INFORMATION
  Report Type: Spontaneous
  Country: GB (occurrence: GB)
  Receive Date: 20250418
  Receipt Date: 20250826
  Transmission Date: 20251021
  Serious: Yes (Other)
  Sender: SANDOZ
  Company Number: GB-BRISTOL-MYERS SQUIBB COMPANY-2025-048896

PATIENT
  Age: 79 Year
  Sex: Male

DRUGS (62)
  1. BORTEZOMIB [Suspect]
     Active Substance: BORTEZOMIB
     Indication: Plasma cell myeloma
     Route: 065
     Dates: start: 2015
  2. CYCLOPHOSPHAMIDE [Suspect]
     Active Substance: CYCLOPHOSPHAMIDE
     Indication: Plasma cell myeloma
     Route: 065
     Dates: start: 2015
  3. DECADRON (DEXAMETHASONE SODIUM PHOSPHATE) [Suspect]
     Active Substance: DEXAMETHASONE SODIUM PHOSPHATE
     Route: 065
     Dates: start: 2024
  4. DECADRON (DEXAMETHASONE SODIUM PHOSPHATE) [Suspect]
     Active Substance: DEXAMETHASONE SODIUM PHOSPHATE
     Route: 065
  5. DECADRON (DEXAMETHASONE SODIUM PHOSPHATE) [Suspect]
     Active Substance: DEXAMETHASONE SODIUM PHOSPHATE
     Indication: Plasma cell myeloma
     Route: 065
     Dates: start: 2015
  6. ISATUXIMAB [Suspect]
     Active Substance: ISATUXIMAB
     Indication: Plasma cell myeloma
     Route: 065
     Dates: start: 2024
  7. LENALIDOMIDE [Suspect]
     Active Substance: LENALIDOMIDE
     Indication: Plasma cell myeloma
     Route: 065
     Dates: start: 2015, end: 202012
  8. POMALIDOMIDE [Suspect]
     Active Substance: POMALIDOMIDE
     Indication: Plasma cell myeloma
     Route: 065
     Dates: start: 2024
  9. TECLISTAMAB [Suspect]
     Active Substance: TECLISTAMAB
     Indication: Plasma cell myeloma
     Route: 065
     Dates: start: 202501
  10. TECLISTAMAB [Suspect]
     Active Substance: TECLISTAMAB
     Indication: Plasma cell myeloma refractory
     Route: 065
  11. THALIDOMIDE [Suspect]
     Active Substance: THALIDOMIDE
     Route: 065
     Dates: start: 201409, end: 201409
  12. THALIDOMIDE [Suspect]
     Active Substance: THALIDOMIDE
     Indication: Plasma cell myeloma
     Route: 065
     Dates: end: 201409
  13. VELCADE [Suspect]
     Active Substance: BORTEZOMIB
     Indication: Plasma cell myeloma
     Route: 065
     Dates: start: 2015
  14. VELCADE [Suspect]
     Active Substance: BORTEZOMIB
     Indication: Plasma cell myeloma refractory
  15. ACYCLOVIR [Concomitant]
     Active Substance: ACYCLOVIR
     Dosage: 400 MG, QD (400 MILLIGRAM, ONCE A DAY (0.5 DAY)
     Route: 065
  16. ACYCLOVIR [Concomitant]
     Active Substance: ACYCLOVIR
     Dosage: 800 MG, QD, 400 MILLIGRAM, BID
     Route: 065
  17. ACYCLOVIR [Concomitant]
     Active Substance: ACYCLOVIR
     Dosage: 400 MG, QD
     Route: 065
  18. ACYCLOVIR [Concomitant]
     Active Substance: ACYCLOVIR
     Indication: Product used for unknown indication
     Dosage: 400 MILLIGRAM, ONCE A DAY (0.5 DAY)
     Route: 065
  19. ACYCLOVIR [Concomitant]
     Active Substance: ACYCLOVIR
     Dosage: 400 MG, Q12H
     Route: 065
  20. ACYCLOVIR [Concomitant]
     Active Substance: ACYCLOVIR
     Dosage: 800 UNK
     Route: 065
  21. APIXABAN [Concomitant]
     Active Substance: APIXABAN
     Dosage: 5 MG, QD (5 MILLIGRAM, ONCE A DAY (0.5 DAY)
     Route: 065
  22. APIXABAN [Concomitant]
     Active Substance: APIXABAN
     Dosage: 10 MG, QD (5 MILLIGRAM, BID (10 MILLIGRAM, QD))
     Route: 065
  23. APIXABAN [Concomitant]
     Active Substance: APIXABAN
     Dosage: 10 MG, QD
     Route: 065
  24. APIXABAN [Concomitant]
     Active Substance: APIXABAN
     Dosage: 5 MG, QD
     Route: 065
  25. APIXABAN [Concomitant]
     Active Substance: APIXABAN
     Indication: Product used for unknown indication
     Dosage: 5 MILLIGRAM, ONCE A DAY (0.5 DAY)
     Route: 065
  26. APIXABAN [Concomitant]
     Active Substance: APIXABAN
     Dosage: 5 MG, Q12H
     Route: 065
  27. ATOVAQUONE [Concomitant]
     Active Substance: ATOVAQUONE
     Dosage: 1500 MG, QD, 750 MILLIGRAM, BID)
     Route: 065
  28. ATOVAQUONE [Concomitant]
     Active Substance: ATOVAQUONE
     Dosage: 750 MG, QD (0.5 DAY)
     Route: 065
  29. ATOVAQUONE [Concomitant]
     Active Substance: ATOVAQUONE
     Dosage: 1500 MG, QD, 750 MILLIGRAM, BID)
     Route: 065
  30. ATOVAQUONE [Concomitant]
     Active Substance: ATOVAQUONE
     Dosage: 750 MG, QD
     Route: 065
  31. ATOVAQUONE [Concomitant]
     Active Substance: ATOVAQUONE
     Indication: Product used for unknown indication
     Dosage: 750 MILLIGRAM, ONCE A DAY (0.5 DAY)
     Route: 065
  32. ATOVAQUONE [Concomitant]
     Active Substance: ATOVAQUONE
     Dosage: 750 MG, Q12H
     Route: 065
  33. BISACODYL [Concomitant]
     Active Substance: BISACODYL
     Dosage: 5 MG, QD, (5 MILLIGRAM, PM (BISACODYL 5MG AT NIGHT))
     Route: 065
  34. BISACODYL [Concomitant]
     Active Substance: BISACODYL
     Dosage: 7.5 MG, QD (7.5 MILLIGRAM, ONCE A DAY)
     Route: 065
  35. BISACODYL [Concomitant]
     Active Substance: BISACODYL
     Dosage: 5 MG, QD, (5 MILLIGRAM, PM (BISACODYL 5MG AT NIGHT)
     Route: 065
  36. BISACODYL [Concomitant]
     Active Substance: BISACODYL
     Dosage: 5 MG, QD, (5 MILLIGRAM, PM (BISACODYL 5MG AT NIGHT))
     Route: 065
  37. BISACODYL [Concomitant]
     Active Substance: BISACODYL
     Indication: Product used for unknown indication
     Dosage: 5 MILLIGRAM, ONCE A DAY (5 MILLIGRAM, PM (BISACODYL 5MG AT NIGHT))
     Route: 065
  38. BISACODYL [Concomitant]
     Active Substance: BISACODYL
     Route: 065
  39. BISOPROLOL [Concomitant]
     Active Substance: BISOPROLOL
     Dosage: 7.5 MG, QD (ONCE A DAY)
     Route: 065
  40. BISOPROLOL [Concomitant]
     Active Substance: BISOPROLOL
     Dosage: 7.5 MG, QD
     Route: 065
  41. BISOPROLOL [Concomitant]
     Active Substance: BISOPROLOL
     Indication: Product used for unknown indication
     Dosage: 7.5 MILLIGRAM, ONCE A DAY
     Route: 065
  42. DOCUSATE [Concomitant]
     Active Substance: DOCUSATE
     Dosage: 200 MG, QD, 200 MILLIGRAM, ONCE A DAY (0.5 DAY)
     Route: 065
  43. DOCUSATE [Concomitant]
     Active Substance: DOCUSATE
     Dosage: 400 MG, QD, (200 MILLIGRAM, BID)
     Route: 065
  44. DOCUSATE [Concomitant]
     Active Substance: DOCUSATE
     Dosage: 200 MG, QD
     Route: 065
  45. DOCUSATE [Concomitant]
     Active Substance: DOCUSATE
     Dosage: 200 MG, QD, 200 MILLIGRAM, ONCE A DAY (0.5 DAY)
     Route: 065
  46. DOCUSATE [Concomitant]
     Active Substance: DOCUSATE
     Dosage: 200 MG, QD, 200 MILLIGRAM, ONCE A DAY (0.5 DAY)
     Route: 065
  47. DOCUSATE [Concomitant]
     Active Substance: DOCUSATE
     Indication: Product used for unknown indication
     Dosage: 200 MILLIGRAM, ONCE A DAY (0.5 DAY)
     Route: 065
  48. DOCUSATE [Concomitant]
     Active Substance: DOCUSATE
     Dosage: 400 MG, QD
     Route: 065
  49. DOCUSATE [Concomitant]
     Active Substance: DOCUSATE
     Dosage: 400 MG, QD, (200 MILLIGRAM, BID)
     Route: 065
  50. EPOETIN BETA [Concomitant]
     Active Substance: ERYTHROPOIETIN
     Dosage: 30000 IU, QW (30000 IU, WEEKLY, 30,000 UNITS WEEKLY)
     Route: 065
  51. EPOETIN BETA [Concomitant]
     Active Substance: ERYTHROPOIETIN
     Dosage: 3000 IU, QW (30,000 UNITS WEEKLY)
     Route: 065
  52. EPOETIN BETA [Concomitant]
     Active Substance: ERYTHROPOIETIN
     Dosage: 3000 IU, QW
     Route: 065
  53. EPOETIN BETA [Concomitant]
     Active Substance: ERYTHROPOIETIN
     Indication: Product used for unknown indication
     Dosage: 30000 INTERNATIONAL UNIT, EVERY WEEK
     Route: 065
  54. FINASTERIDE [Concomitant]
     Active Substance: FINASTERIDE
     Dosage: 5 MG, QD ONCE A DAY
     Route: 065
  55. FINASTERIDE [Concomitant]
     Active Substance: FINASTERIDE
     Dosage: 5 MG, QD
     Route: 065
  56. FINASTERIDE [Concomitant]
     Active Substance: FINASTERIDE
     Indication: Product used for unknown indication
     Dosage: 5 MILLIGRAM, ONCE A DAY
     Route: 065
  57. TAMSULOSIN [Concomitant]
     Active Substance: TAMSULOSIN
     Route: 065
  58. TAMSULOSIN [Concomitant]
     Active Substance: TAMSULOSIN
     Indication: Product used for unknown indication
     Route: 065
  59. TAMSULOSIN HYDROCHLORIDE [Concomitant]
     Active Substance: TAMSULOSIN HYDROCHLORIDE
     Indication: Product used for unknown indication
     Route: 065
  60. ZOPICLONE [Concomitant]
     Active Substance: ZOPICLONE
     Dosage: 3.75 MG, QD (3.75 MG, QD (3.75 MILLIGRAM, HS (AT BEDTIME) (3.75 MILLIGRAM, PM (ZOPLICLONE 3.75 MG NO
     Route: 065
  61. ZOPICLONE [Concomitant]
     Active Substance: ZOPICLONE
     Route: 065
  62. ZOPICLONE [Concomitant]
     Active Substance: ZOPICLONE
     Indication: Product used for unknown indication
     Route: 065

REACTIONS (4)
  - IgA nephropathy [Unknown]
  - IVth nerve paralysis [Unknown]
  - Drug ineffective [Unknown]
  - COVID-19 [Unknown]
